FAERS Safety Report 7032130-2 (Version None)
Quarter: 2010Q4

REPORT INFORMATION
  Report Type: 
  Country: None (occurrence: None)
  Receive Date: 20101007
  Receipt Date: 20100924
  Transmission Date: 20110411
  Serious: Yes (Hospitalization, Other)
  Sender: FDA-Public Use
  Company Number: US-ELI_LILLY_AND_COMPANY-US201009006930

PATIENT
  Sex: Female

DRUGS (16)
  1. FORTEO [Suspect]
     Indication: OSTEOPOROSIS
     Dosage: 20 UG, DAILY (1/D)
  2. GABAPENTIN [Concomitant]
     Dosage: 300 MG, 2/D
  3. CALCIUM ACETATE [Concomitant]
     Dosage: 667 MG, 3/D
  4. PREDNISONE [Concomitant]
     Dosage: 5 MG, DAILY (1/D)
  5. BACTRIM [Concomitant]
     Dosage: UNK, 3/W
  6. PROGRAF [Concomitant]
     Dosage: 1 MG, 2/D
  7. VORICONAZOLE [Concomitant]
     Dosage: 200 MG, 2/D
  8. AZITHROMYCIN [Concomitant]
     Dosage: UNK, 3/W
  9. ABILIFY [Concomitant]
  10. ATIVAN [Concomitant]
     Indication: ANXIETY
  11. IMURAN [Concomitant]
     Dosage: UNK, DAILY (1/D)
  12. TRAZODONE HCL [Concomitant]
     Dosage: UNK, EACH EVENING
  13. ZOLOFT [Concomitant]
     Dosage: 100 MG, DAILY (1/D)
  14. MIRAPEX [Concomitant]
     Dosage: UNK, DAILY (1/D)
  15. CASPOFUNGIN ACETATE [Concomitant]
     Dosage: 50 MG, DAILY (1/D)
     Route: 042
  16. AMPHOTERICIN B [Concomitant]
     Dosage: UNK, 2/D
     Route: 055

REACTIONS (4)
  - LUNG TRANSPLANT [None]
  - LUNG TRANSPLANT REJECTION [None]
  - PNEUMONITIS [None]
  - RENAL FAILURE [None]
